FAERS Safety Report 14437011 (Version 1)
Quarter: 2018Q1

REPORT INFORMATION
  Report Type: Spontaneous
  Country: US (occurrence: US)
  Receive Date: 20180125
  Receipt Date: 20180125
  Transmission Date: 20180509
  Serious: Yes (Other)
  Sender: FDA-Public Use
  Company Number: None

PATIENT
  Age: 58 Year
  Sex: Male

DRUGS (24)
  1. NYSTOP [Concomitant]
     Active Substance: NYSTATIN
  2. QVAR [Concomitant]
     Active Substance: BECLOMETHASONE DIPROPIONATE
  3. TORSEMIDE. [Concomitant]
     Active Substance: TORSEMIDE
  4. K-TAB [Concomitant]
     Active Substance: POTASSIUM CHLORIDE
  5. SUDAFED [Concomitant]
     Active Substance: PSEUDOEPHEDRINE HYDROCHLORIDE
  6. VENTOLIN HFA [Concomitant]
     Active Substance: ALBUTEROL SULFATE
  7. HUMULIN R [Concomitant]
     Active Substance: INSULIN HUMAN
  8. REFRESH LIQUIGEL [Concomitant]
     Active Substance: CARBOXYMETHYLCELLULOSE SODIUM
  9. TRACLEER [Suspect]
     Active Substance: BOSENTAN
     Indication: HEART DISEASE CONGENITAL
     Route: 048
     Dates: start: 201411
  10. ATORVASTATIN [Concomitant]
     Active Substance: ATORVASTATIN
  11. GABAPENTIN. [Concomitant]
     Active Substance: GABAPENTIN
  12. MVI-MINERALS [Concomitant]
  13. TRACLEER [Suspect]
     Active Substance: BOSENTAN
     Indication: CONNECTIVE TISSUE DISORDER
     Route: 048
     Dates: start: 201411
  14. VICTOZA [Concomitant]
     Active Substance: LIRAGLUTIDE
  15. METOLAZONE. [Concomitant]
     Active Substance: METOLAZONE
  16. FLONASE [Concomitant]
     Active Substance: FLUTICASONE PROPIONATE
  17. OXYCODONE [Concomitant]
     Active Substance: OXYCODONE
  18. SPIRONOLACTONE. [Concomitant]
     Active Substance: SPIRONOLACTONE
  19. GLUCAGON. [Concomitant]
     Active Substance: GLUCAGON
  20. LOSARTAN. [Concomitant]
     Active Substance: LOSARTAN
  21. WARFARIN [Concomitant]
     Active Substance: WARFARIN
  22. NYSTATIN TOP CREAM [Concomitant]
  23. REVATIO [Concomitant]
     Active Substance: SILDENAFIL CITRATE
  24. FLUORIDEX [Concomitant]
     Active Substance: STANNOUS FLUORIDE

REACTIONS (3)
  - Atrial fibrillation [None]
  - Poor venous access [None]
  - Refusal of treatment by patient [None]

NARRATIVE: CASE EVENT DATE: 20180114
